FAERS Safety Report 5429724-4 (Version None)
Quarter: 2007Q3

REPORT INFORMATION
  Report Type: 
  Country: None (occurrence: None)
  Receive Date: 20070731
  Receipt Date: 20070522
  Transmission Date: 20080115
  Serious: No
  Sender: FDA-Public Use
  Company Number: US200704003072

PATIENT
  Age: 67 Year
  Sex: Female
  Weight: 113.4 kg

DRUGS (10)
  1. BYETTA [Suspect]
     Indication: TYPE 2 DIABETES MELLITUS
     Dosage: 5 UG, 2/D, SUBCUTANEOUS; 10 UG, 2/D, SUBCUTANEOUS
     Route: 058
     Dates: start: 20051201, end: 20050101
  2. BYETTA [Suspect]
     Indication: TYPE 2 DIABETES MELLITUS
     Dosage: 5 UG, 2/D, SUBCUTANEOUS; 10 UG, 2/D, SUBCUTANEOUS
     Route: 058
     Dates: start: 20050101
  3. EXENATIDE PEN, DISPOSABLE DEVICE (EXENATIDE PEN) [Concomitant]
  4. GLUCOPHAGE [Concomitant]
  5. GEMFIBROZIL [Concomitant]
  6. SYNTHROID [Concomitant]
  7. ASPIRIN [Concomitant]
  8. LISINOPRIL [Concomitant]
  9. ROLAIDS (DIHYDROXYALUMINUM) [Concomitant]
  10. PREVACID [Concomitant]

REACTIONS (11)
  - ABDOMINAL PAIN UPPER [None]
  - APPETITE DISORDER [None]
  - BLOOD GLUCOSE INCREASED [None]
  - CHEST PAIN [None]
  - CHOLELITHIASIS [None]
  - DIZZINESS [None]
  - ELECTROCARDIOGRAM CHANGE [None]
  - GALLBLADDER OBSTRUCTION [None]
  - INCISION SITE PAIN [None]
  - STRESS [None]
  - WEIGHT DECREASED [None]
